FAERS Safety Report 20371013 (Version 1)
Quarter: 2022Q1

REPORT INFORMATION
  Report Type: Spontaneous
  Country: US (occurrence: None)
  Receive Date: 20220124
  Receipt Date: 20220124
  Transmission Date: 20220423
  Serious: No
  Sender: FDA-Public Use
  Company Number: None

PATIENT
  Age: 65 Year
  Sex: Female

DRUGS (1)
  1. CAPECITABINE [Suspect]
     Active Substance: CAPECITABINE
     Indication: Neoplasm malignant
     Dosage: 1000 MG BID ORAL?
     Route: 048
     Dates: start: 202110

REACTIONS (6)
  - Fall [None]
  - Nausea [None]
  - Vomiting [None]
  - Weight decreased [None]
  - Pain in extremity [None]
  - Metastases to bone [None]

NARRATIVE: CASE EVENT DATE: 20211006
